FAERS Safety Report 10495102 (Version 4)
Quarter: 2014Q4

REPORT INFORMATION
  Report Type: Spontaneous
  Country: US (occurrence: None)
  Receive Date: 20141001
  Receipt Date: 20141103
  Transmission Date: 20150528
  Serious: Yes (Other)
  Sender: FDA-Public Use
  Company Number: US-H14001-14-00849

PATIENT
  Age: 72 Year
  Sex: Female
  Weight: 56.25 kg

DRUGS (11)
  1. BENAZEPRIL [Concomitant]
     Active Substance: BENAZEPRIL\BENAZEPRIL HYDROCHLORIDE
  2. SERTRALINE [Concomitant]
     Active Substance: SERTRALINE HYDROCHLORIDE
  3. VITAMIN B12 (CYANOCOBLALAMIN) [Concomitant]
  4. LEVOTHYROXINE (LEVOTHYROXINE) [Concomitant]
     Active Substance: LEVOTHYROXINE
  5. LORAZEPAM (LORAZEPAM) [Concomitant]
     Active Substance: LORAZEPAM
  6. VITAMIN B3 (NICOTINAMIDE) [Concomitant]
  7. PREDNISONE. [Suspect]
     Active Substance: PREDNISONE
     Indication: TEMPORAL ARTERITIS
     Dosage: TAPER TO 10 MG
     Route: 048
     Dates: start: 20140213, end: 201402
  8. OMEPRAZOLE (OMEPRAZOLE) [Concomitant]
     Active Substance: OMEPRAZOLE
  9. SIMVASTATIN (SIMVASTATIN) [Concomitant]
     Active Substance: SIMVASTATIN
  10. OCUVITE (OCUVITE /01053801/) (UNKNOWN) (ASCORBIC ACID, TOCOPHEROL, RETINOL) [Concomitant]
  11. ALIGN (BIFIDOBACTERIUM INFANTIS) [Concomitant]

REACTIONS (9)
  - Alopecia [None]
  - Diabetes mellitus [None]
  - Vision blurred [None]
  - Asthenia [None]
  - Nasopharyngitis [None]
  - Fatigue [None]
  - Glycosylated haemoglobin increased [None]
  - Eye pain [None]
  - Headache [None]

NARRATIVE: CASE EVENT DATE: 2014
